FAERS Safety Report 17846550 (Version 2)
Quarter: 2020Q2

REPORT INFORMATION
  Report Type: Spontaneous
  Country: GB (occurrence: GB)
  Receive Date: 20200601
  Receipt Date: 20200609
  Transmission Date: 20200714
  Serious: Yes (Death, Life-Threatening, Hospitalization, Disabling, Other)
  Sender: FDA-Public Use
  Company Number: GB-MYLANLABS-2020M1052301

PATIENT
  Age: 80 Year
  Sex: Female
  Weight: 58.7 kg

DRUGS (15)
  1. ERYTHROMYCIN. [Concomitant]
     Active Substance: ERYTHROMYCIN
     Dosage: (PROPHYLAXIS POST SPLENECTOMY) ? PRESCRIBED PRIOR TO ADMISSION
     Dates: start: 20200327
  2. QUININE SULFATE. [Concomitant]
     Active Substance: QUININE SULFATE
     Indication: MUSCLE SPASMS
     Dosage: AT NIGHT ? PRESCRIBED THIS MEDICATION PRIOR TO ADMISSION
     Dates: start: 20200329
  3. MAGNESIUM [Concomitant]
     Active Substance: MAGNESIUM
     Dosage: UNK
  4. MEMANTINE. [Concomitant]
     Active Substance: MEMANTINE
     Indication: DEMENTIA
     Dosage: IN THE MORNING ? ON THIS PRIOR TO ADMISSION
     Dates: start: 20200329
  5. CANDESARTAN. [Concomitant]
     Active Substance: CANDESARTAN
     Indication: HYPERTENSION
     Dosage: IN THE MORNING - PRESCRIBED THIS MEDICATION PRIOR TO ADMISSION STOPPED ON THE 29/3/20
  6. COLCHICINE. [Concomitant]
     Active Substance: COLCHICINE
     Dosage: UNK
     Dates: start: 20200317, end: 20200320
  7. SODIUM VALPROATE [Concomitant]
     Active Substance: VALPROATE SODIUM
     Indication: SEIZURE
     Dosage: ON THIS MEDICATION PRIOR TO ADMISSION
     Dates: start: 20200329
  8. LANSOPRAZOLE. [Concomitant]
     Active Substance: LANSOPRAZOLE
     Dosage: IN THE MORNING (PPI GASTRO PROTECTION) - PRESCRIBED PRIOR TO ADMISSION
     Dates: start: 20200329
  9. ATORVASTATIN [Concomitant]
     Active Substance: ATORVASTATIN
     Dosage: UNK
  10. NYSTATIN. [Concomitant]
     Active Substance: NYSTATIN
     Indication: ORAL CANDIDIASIS
     Dosage: 4 MILLILITER, QD (100,000 UNITS/1ML)
     Dates: start: 20200318, end: 20200322
  11. POTASSIUM [Concomitant]
     Active Substance: POTASSIUM
     Dosage: UNK
  12. NIFEDIPINE. [Concomitant]
     Active Substance: NIFEDIPINE
     Indication: HYPERTENSION
     Dosage: IN THE MORNING ? ON THIS PRIOR TO ADMISSION
     Dates: start: 20200329
  13. METFORMIN [Concomitant]
     Active Substance: METFORMIN HYDROCHLORIDE
     Dosage: UNK
  14. WARFARIN [Suspect]
     Active Substance: WARFARIN
     Indication: ATRIAL FIBRILLATION
     Dosage: 3MG DAILY EXCEPT 2MG ON SATURDAY AND SUNDAY
     Route: 048
     Dates: start: 20130104, end: 20200319
  15. SANDO K                            /00031402/ [Concomitant]
     Indication: BLOOD POTASSIUM DECREASED
     Dosage: UNK

REACTIONS (2)
  - International normalised ratio increased [Recovered/Resolved]
  - COVID-19 pneumonia [Fatal]

NARRATIVE: CASE EVENT DATE: 20200320
